FAERS Safety Report 14593246 (Version 1)
Quarter: 2018Q1

REPORT INFORMATION
  Report Type: Spontaneous
  Country: CN (occurrence: CN)
  Receive Date: 20180302
  Receipt Date: 20180302
  Transmission Date: 20180509
  Serious: Yes (Other)
  Sender: FDA-Public Use
  Company Number: CN-PFIZER INC-2018089762

PATIENT
  Age: 49 Year
  Sex: Male
  Weight: 46 kg

DRUGS (3)
  1. EPIRUBICIN HCL [Suspect]
     Active Substance: EPIRUBICIN HYDROCHLORIDE
     Indication: LYMPHOMA
     Dosage: 100 MG, 1X/DAY
     Route: 041
     Dates: start: 20171019, end: 20171019
  2. CYCLOPHOSPHAMIDE. [Suspect]
     Active Substance: CYCLOPHOSPHAMIDE
     Indication: LYMPHOMA
     Dosage: 0.9 G, 1X/DAY
     Route: 042
     Dates: start: 20171019, end: 20171019
  3. VINDESINE SULFATE [Suspect]
     Active Substance: VINDESINE SULFATE
     Indication: LYMPHOMA
     Dosage: 4 MG, 1X/DAY
     Route: 042
     Dates: start: 20171019, end: 20171019

REACTIONS (5)
  - Bone marrow failure [Recovering/Resolving]
  - Asthenia [Unknown]
  - Pallor [Unknown]
  - Agranulocytosis [Recovering/Resolving]
  - Dizziness [Unknown]

NARRATIVE: CASE EVENT DATE: 20171027
